FAERS Safety Report 19893553 (Version 7)
Quarter: 2022Q2

REPORT INFORMATION
  Report Type: Report from Study
  Country: CA (occurrence: CA)
  Receive Date: 20210928
  Receipt Date: 20220520
  Transmission Date: 20220720
  Serious: No
  Sender: FDA-Public Use
  Company Number: CA-SA-SAC20210927001227

PATIENT
  Age: 48 Year
  Sex: Female

DRUGS (15)
  1. DUPILUMAB [Suspect]
     Active Substance: DUPILUMAB
     Indication: Dermatitis atopic
     Dosage: 600 MG, 1X
     Route: 058
     Dates: start: 20210917, end: 20210917
  2. DUPILUMAB [Suspect]
     Active Substance: DUPILUMAB
     Dosage: 300 MG, QOW
     Route: 058
     Dates: start: 2021
  3. DUPILUMAB [Suspect]
     Active Substance: DUPILUMAB
     Dosage: 600 MG, 1X
     Route: 058
     Dates: start: 20220429, end: 20220429
  4. DUPILUMAB [Suspect]
     Active Substance: DUPILUMAB
     Dosage: 300 MG, QOW
     Route: 058
     Dates: start: 20220516
  5. TACROLIMUS [Concomitant]
     Active Substance: TACROLIMUS
  6. TACROLIMUS [Concomitant]
     Active Substance: TACROLIMUS
  7. TACROLIMUS [Concomitant]
     Active Substance: TACROLIMUS
     Dosage: UNK
  8. TACROLIMUS [Concomitant]
     Active Substance: TACROLIMUS
     Dosage: UNK
  9. BETADERM [Concomitant]
     Active Substance: BETAMETHASONE VALERATE
     Dosage: UNK
  10. BETADERM [Concomitant]
     Active Substance: BETAMETHASONE VALERATE
     Dosage: BID, PRN
  11. CAMPHOR [Concomitant]
     Active Substance: CAMPHOR
     Dosage: UNK
  12. CAMPHOR [Concomitant]
     Active Substance: CAMPHOR
     Dosage: UNK
  13. MENTHOL [Concomitant]
     Active Substance: MENTHOL
  14. MENTHOL [Concomitant]
     Active Substance: MENTHOL
     Dosage: UNK, PRN
  15. CAMPHOR;MENTHOL [Concomitant]
     Dosage: UNK, BID (PRN)

REACTIONS (11)
  - Dizziness [Recovered/Resolved]
  - Dry skin [Recovered/Resolved]
  - Pruritus [Recovered/Resolved]
  - Injection site dryness [Unknown]
  - Inflammation [Unknown]
  - Dry skin [Not Recovered/Not Resolved]
  - Injection site pruritus [Unknown]
  - Rash [Unknown]
  - Product use issue [Unknown]
  - Therapy cessation [Unknown]
  - Drug ineffective [Unknown]

NARRATIVE: CASE EVENT DATE: 20210901
